FAERS Safety Report 4430420-0 (Version None)
Quarter: 2004Q3

REPORT INFORMATION
  Report Type: 
  Country: None (occurrence: None)
  Receive Date: 20040721
  Receipt Date: 20030828
  Transmission Date: 20050211
  Serious: Yes (Life-Threatening, Hospitalization)
  Sender: FDA-Public Use
  Company Number: WAES 0309USA00099

PATIENT
  Age: 52 Year
  Sex: Female
  Weight: 86.1834 kg

DRUGS (3)
  1. VIOXX [Suspect]
     Indication: ANALGESIC EFFECT
     Dosage: 25 MG/DAILY/PO
     Route: 048
     Dates: start: 20030601, end: 20030815
  2. VIOXX [Suspect]
     Indication: ARTHRITIS
     Dosage: 25 MG/DAILY/PO
     Route: 048
     Dates: start: 20030601, end: 20030815
  3. COUMADIN [Concomitant]

REACTIONS (1)
  - HEPATITIS ACUTE [None]
